FAERS Safety Report 22058069 (Version 2)
Quarter: 2023Q2

REPORT INFORMATION
  Report Type: Other
  Country: US (occurrence: None)
  Receive Date: 20230303
  Receipt Date: 20230407
  Transmission Date: 20230721
  Serious: Yes (Death)
  Sender: FDA-Public Use
  Company Number: US-ROCHE-3292162

PATIENT
  Age: 50 Year
  Sex: Male

DRUGS (6)
  1. EVRYSDI [Suspect]
     Active Substance: RISDIPLAM
     Indication: Spinal muscular atrophy
     Route: 048
     Dates: start: 202011
  2. GABAPENTIN [Concomitant]
     Active Substance: GABAPENTIN
     Route: 048
  3. PREDNISONE [Concomitant]
     Active Substance: PREDNISONE
  4. DEXILANT [Concomitant]
     Active Substance: DEXLANSOPRAZOLE
     Route: 048
  5. DIFLUCAN [Concomitant]
     Active Substance: FLUCONAZOLE
     Route: 048
  6. KEFLEX [Concomitant]
     Active Substance: CEPHALEXIN
     Route: 048

REACTIONS (1)
  - Death [Fatal]
